FAERS Safety Report 8263961-9 (Version None)
Quarter: 2012Q2

REPORT INFORMATION
  Report Type: 
  Country: None (occurrence: None)
  Receive Date: 20120406
  Receipt Date: 20120328
  Transmission Date: 20120825
  Serious: Yes (Hospitalization)
  Sender: FDA-Public Use
  Company Number: US-BIOGENIDEC-2012BI003550

PATIENT
  Age: 51 Year
  Sex: Female

DRUGS (4)
  1. TYSABRI [Concomitant]
     Indication: MULTIPLE SCLEROSIS
     Route: 042
     Dates: start: 20070626, end: 20070917
  2. AVONEX [Suspect]
     Indication: MULTIPLE SCLEROSIS
     Route: 030
  3. AVONEX [Suspect]
     Route: 030
     Dates: start: 20100501, end: 20101101
  4. AVONEX [Suspect]
     Route: 030
     Dates: start: 20101201

REACTIONS (6)
  - SOMNOLENCE [None]
  - INFLUENZA LIKE ILLNESS [None]
  - THROMBOSIS [None]
  - SWELLING [None]
  - ASTHENIA [None]
  - INJECTION SITE PAIN [None]
